FAERS Safety Report 13333586 (Version 1)
Quarter: 2017Q1

REPORT INFORMATION
  Report Type: Spontaneous
  Country: US (occurrence: US)
  Receive Date: 20170314
  Receipt Date: 20170314
  Transmission Date: 20170428
  Serious: Yes (Other)
  Sender: FDA-Public Use
  Company Number: US-BEH-2017078633

PATIENT
  Age: 62 Year
  Sex: Female

DRUGS (5)
  1. PRIVIGEN [Suspect]
     Active Substance: HUMAN IMMUNOGLOBULIN G
     Indication: IMMUNODEFICIENCY COMMON VARIABLE
     Dosage: 50 G, Q3W
     Route: 042
  2. ADALIMUMAB [Suspect]
     Active Substance: ADALIMUMAB
     Indication: DIARRHOEA
  3. ADALIMUMAB [Suspect]
     Active Substance: ADALIMUMAB
     Indication: RHEUMATOID ARTHRITIS
     Dosage: UNK, QW
     Route: 065
  4. ADALIMUMAB [Suspect]
     Active Substance: ADALIMUMAB
     Indication: MUSCULOSKELETAL STIFFNESS
  5. ADALIMUMAB [Suspect]
     Active Substance: ADALIMUMAB
     Indication: ARTHRALGIA

REACTIONS (4)
  - Musculoskeletal stiffness [Unknown]
  - Diarrhoea [Unknown]
  - Arthralgia [Unknown]
  - Inhibitory drug interaction [Unknown]
